FAERS Safety Report 7626054-7 (Version None)
Quarter: 2011Q3

REPORT INFORMATION
  Report Type: 
  Country: None (occurrence: None)
  Receive Date: 20110721
  Receipt Date: 20110715
  Transmission Date: 20111222
  Serious: Yes (Other)
  Sender: FDA-Public Use
  Company Number: US-AMGEN-QUU432665

PATIENT
  Age: 73 Year
  Sex: Female
  Weight: 61.7 kg

DRUGS (4)
  1. PREDNISONE [Concomitant]
     Dosage: UNK UNK, QD
     Route: 048
     Dates: start: 20080327, end: 20090723
  2. RITUXIMAB [Concomitant]
     Dosage: UNK UNK, QWK
     Dates: start: 20100115, end: 20100617
  3. CORTICOSTEROID NOS [Concomitant]
     Dosage: UNK UNK, UNK
     Dates: start: 20081227
  4. NPLATE [Suspect]
     Indication: IDIOPATHIC THROMBOCYTOPENIC PURPURA
     Dosage: 1 A?G/KG, QWK
     Route: 058
     Dates: start: 20090121, end: 20100121

REACTIONS (3)
  - POLYMYALGIA RHEUMATICA [None]
  - ANAEMIA [None]
  - COOMBS TEST POSITIVE [None]
